FAERS Safety Report 7310396-9 (Version None)
Quarter: 2011Q1

REPORT INFORMATION
  Report Type: 
  Country: None (occurrence: None)
  Receive Date: 20110224
  Receipt Date: 20100715
  Transmission Date: 20110831
  Serious: No
  Sender: FDA-Public Use
  Company Number: US-BRISTOL-MYERS SQUIBB COMPANY-15193709

PATIENT
  Sex: Male

DRUGS (4)
  1. PRINIVIL [Suspect]
     Indication: PROPHYLAXIS
  2. ACTOS [Suspect]
     Indication: PROPHYLAXIS
  3. GLIPIZIDE [Suspect]
     Indication: PROPHYLAXIS
  4. GLUCOPHAGE [Suspect]
     Indication: PROPHYLAXIS

REACTIONS (1)
  - PROTEINURIA [None]
